FAERS Safety Report 7536396-1 (Version None)
Quarter: 2011Q2

REPORT INFORMATION
  Report Type: 
  Country: None (occurrence: None)
  Receive Date: 20110524
  Receipt Date: 20110309
  Transmission Date: 20111010
  Serious: Yes (Hospitalization)
  Sender: FDA-Public Use
  Company Number: 029072

PATIENT
  Sex: Male

DRUGS (1)
  1. CIMZIA [Suspect]
     Dosage: (STRENGTH 200MG/ML DOSE 400 X 1 SUBCUTANEOUS)
     Route: 058

REACTIONS (1)
  - DYSPNOEA [None]
